FAERS Safety Report 19828583 (Version 3)
Quarter: 2021Q4

REPORT INFORMATION
  Report Type: Spontaneous
  Country: US (occurrence: US)
  Receive Date: 20210915
  Receipt Date: 20211201
  Transmission Date: 20220303
  Serious: Yes (Hospitalization, Other)
  Sender: FDA-Public Use
  Company Number: US-BRISTOL-MYERS SQUIBB COMPANY-BMS-2021-091226

PATIENT
  Age: 81 Year
  Sex: Female

DRUGS (1)
  1. ELIQUIS [Suspect]
     Active Substance: APIXABAN
     Indication: Cerebrovascular accident prophylaxis
     Dosage: 5 MILLIGRAM, BID
     Route: 048
     Dates: start: 20210722

REACTIONS (7)
  - Septic shock [Unknown]
  - Renal disorder [Unknown]
  - Nephrolithiasis [Unknown]
  - Staphylococcal infection [Unknown]
  - Full blood count abnormal [Recovered/Resolved]
  - Sepsis [Unknown]
  - Urinary tract infection [Unknown]

NARRATIVE: CASE EVENT DATE: 20210901
